FAERS Safety Report 8027843-X (Version None)
Quarter: 2011Q4

REPORT INFORMATION
  Report Type: 
  Country: None (occurrence: None)
  Receive Date: 20111130
  Receipt Date: 20110826
  Transmission Date: 20120403
  Serious: Yes (Other)
  Sender: FDA-Public Use
  Company Number: US201108008215

PATIENT
  Age: 67 Year
  Sex: Female

DRUGS (7)
  1. LORATADINE (LORATADINE) ONGOING [Concomitant]
  2. PRADAXA (DABIGATRAN ETEXILATE MESILATE) ONGOING [Concomitant]
  3. EFFEXOR (VENLAFAXINE HYDROCHLORIDE) ONGOING [Concomitant]
  4. DILTIAZEM (DILTIAZEM) ONGOING [Concomitant]
  5. BYETTA [Suspect]
     Indication: DIABETES MELLITUS
     Dosage: 10 UG, BID, SUBCUTANEOUS
     Route: 058
     Dates: start: 20080411, end: 20110806
  6. METFORMIN (METFORMIN) ONGOING [Concomitant]
  7. PRILOSEC (OMEPRAZOLE) ONGOING [Concomitant]

REACTIONS (1)
  - PANCREATITIS [None]
